FAERS Safety Report 8501337 (Version 3)
Quarter: 2013Q4

REPORT INFORMATION
  Report Type: Other
  Country: DE (occurrence: DE)
  Receive Date: 20120410
  Receipt Date: 20131111
  Transmission Date: 20140711
  Serious: Yes (Hospitalization, Other)
  Sender: FDA-Public Use
  Company Number: DE-BRISTOL-MYERS SQUIBB COMPANY-16386765

PATIENT
  Age: 60 Year
  Sex: Male

DRUGS (5)
  1. YERVOY [Suspect]
     Indication: METASTATIC MALIGNANT MELANOMA
     Dates: start: 2012
  2. DECORTIN [Concomitant]
     Dosage: ALSO TAKEN IN 0.5MG/KG DOSE, 40 MG/DAY
     Route: 048
     Dates: start: 1996
  3. RANITIDINE [Concomitant]
  4. BISOPROLOL [Concomitant]
  5. ZOPICLONE [Concomitant]

REACTIONS (3)
  - Metastases to lung [Unknown]
  - Muscular sarcoidosis [Unknown]
  - Fatigue [Unknown]
